FAERS Safety Report 5735376-6 (Version None)
Quarter: 2008Q2

REPORT INFORMATION
  Report Type: 
  Country: None (occurrence: None)
  Receive Date: 20080508
  Receipt Date: 20080508
  Transmission Date: 20081010
  Serious: No
  Sender: FDA-Public Use
  Company Number: None

PATIENT
  Age: 52 Year
  Sex: Female

DRUGS (3)
  1. CREST PRO-HEALTH NIGHT RINSE [Suspect]
     Indication: DENTAL DISORDER PROPHYLAXIS
     Dosage: 20 ML 2 X/DAY PO
     Route: 048
     Dates: start: 20080301, end: 20080401
  2. CREST PRO-HEALTH NIGHT RINSE [Suspect]
     Indication: DENTAL PLAQUE
     Dosage: 20 ML 2 X/DAY PO
     Route: 048
     Dates: start: 20080301, end: 20080401
  3. CREST PRO-HEALTH NIGHT RINSE [Suspect]
     Indication: GINGIVITIS
     Dosage: 20 ML 2 X/DAY PO
     Route: 048
     Dates: start: 20080301, end: 20080401

REACTIONS (1)
  - DYSGEUSIA [None]
